FAERS Safety Report 4848256-5 (Version None)
Quarter: 2005Q4

REPORT INFORMATION
  Report Type: 
  Country: None (occurrence: None)
  Receive Date: 20051208
  Receipt Date: 20051202
  Transmission Date: 20060501
  Serious: Yes (Death, Other)
  Sender: FDA-Public Use
  Company Number: 2005GB02362

PATIENT
  Age: 19 Year
  Sex: Male
  Weight: 80 kg

DRUGS (1)
  1. PROPOFOL [Suspect]
     Indication: HEAD INJURY
     Dosage: DOSE UP TO 450 MG/HR
     Route: 041
     Dates: start: 20051117, end: 20051122

REACTIONS (4)
  - ACIDOSIS [None]
  - ARRHYTHMIA [None]
  - HYPERKALAEMIA [None]
  - PROPOFOL INFUSION SYNDROME [None]
